FAERS Safety Report 9220676 (Version 1)
Quarter: 2013Q2

REPORT INFORMATION
  Report Type: Spontaneous
  Country: CA (occurrence: CA)
  Receive Date: 20130409
  Receipt Date: 20130409
  Transmission Date: 20140414
  Serious: Yes (Hospitalization)
  Sender: FDA-Public Use
  Company Number: CA-B.I. PHARMACEUTICALS,INC./RIDGEFIELD-2013-CN-00505CN

PATIENT
  Age: 77 Year
  Sex: Male

DRUGS (4)
  1. PRADAXA [Suspect]
     Indication: ATRIAL FIBRILLATION
     Dosage: 300 MG
     Dates: start: 20110815, end: 20120718
  2. ALLOPURINOL [Concomitant]
  3. PANTOPRAZOLE [Concomitant]
  4. TOPIRAMATE [Concomitant]

REACTIONS (1)
  - Deep vein thrombosis [Recovered/Resolved]
